FAERS Safety Report 4895128-6 (Version None)
Quarter: 2006Q1

REPORT INFORMATION
  Report Type: 
  Country: None (occurrence: None)
  Receive Date: 20060125
  Receipt Date: 20060118
  Transmission Date: 20060701
  Serious: Yes (Hospitalization)
  Sender: FDA-Public Use
  Company Number: HQWYE075218APR05

PATIENT
  Age: 49 Year
  Sex: Male

DRUGS (7)
  1. OROKEN (CEFIXIME) [Suspect]
     Indication: PNEUMONIA
     Dosage: 400 MG DAILY, ORAL
     Route: 048
     Dates: start: 20050204, end: 20050211
  2. CELLCEPT [Suspect]
     Indication: LIVER TRANSPLANT
     Dosage: 400 MG 2X PER 1 DAY, ORAL
     Route: 048
  3. OFLOXACIN [Suspect]
     Indication: INFLAMMATION
     Dosage: 400 MG, DAILY, ORAL
     Route: 048
     Dates: start: 20050204, end: 20050211
  4. OFLOXACIN [Suspect]
     Indication: PNEUMONIA
     Dosage: 400 MG, DAILY, ORAL
     Route: 048
     Dates: start: 20050204, end: 20050211
  5. PROGRAF [Suspect]
     Indication: LIVER TRANSPLANT
     Dosage: 1.00 DF TWICE A DAY, ORAL
     Route: 048
     Dates: start: 19920101
  6. AMOXICILLIN [Suspect]
     Indication: PYREXIA
     Dosage: 2 G DAILY, ORAL
     Route: 048
     Dates: start: 20050121, end: 20050126
  7. INSULIN [Concomitant]

REACTIONS (5)
  - HYPERTENSION [None]
  - KIDNEY FIBROSIS [None]
  - RENAL ARTERY STENOSIS [None]
  - RENAL FAILURE ACUTE [None]
  - RENAL TUBULAR ATROPHY [None]
